FAERS Safety Report 25772692 (Version 2)
Quarter: 2025Q3

REPORT INFORMATION
  Report Type: Spontaneous
  Country: US (occurrence: US)
  Receive Date: 20250908
  Receipt Date: 20250911
  Transmission Date: 20251020
  Serious: No
  Sender: MYLAN
  Company Number: US-MYLANLABS-2025M1075163

PATIENT
  Age: 67 Year
  Sex: Female

DRUGS (8)
  1. ESTRADIOL TRANSDERMAL SYSTEM [Suspect]
     Active Substance: ESTRADIOL
     Indication: Product used for unknown indication
     Dosage: 0.05 MILLIGRAM, QD (PER DAY)
  2. ESTRADIOL TRANSDERMAL SYSTEM [Suspect]
     Active Substance: ESTRADIOL
     Dosage: 0.05 MILLIGRAM, QD (PER DAY)
     Route: 062
  3. ESTRADIOL TRANSDERMAL SYSTEM [Suspect]
     Active Substance: ESTRADIOL
     Dosage: 0.05 MILLIGRAM, QD (PER DAY)
     Route: 062
  4. ESTRADIOL TRANSDERMAL SYSTEM [Suspect]
     Active Substance: ESTRADIOL
     Dosage: 0.05 MILLIGRAM, QD (PER DAY)
  5. PROGESTERONE [Suspect]
     Active Substance: PROGESTERONE
     Indication: Product used for unknown indication
  6. PROGESTERONE [Suspect]
     Active Substance: PROGESTERONE
     Route: 048
  7. PROGESTERONE [Suspect]
     Active Substance: PROGESTERONE
     Route: 048
  8. PROGESTERONE [Suspect]
     Active Substance: PROGESTERONE

REACTIONS (6)
  - Malaise [Unknown]
  - Feeling abnormal [Unknown]
  - Mental disorder [Unknown]
  - Gait disturbance [Unknown]
  - Asthenopia [Unknown]
  - Therapeutic response unexpected [Unknown]
